FAERS Safety Report 4904337-9 (Version None)
Quarter: 2006Q1

REPORT INFORMATION
  Report Type: 
  Country: None (occurrence: None)
  Receive Date: 20060208
  Receipt Date: 20050824
  Transmission Date: 20060701
  Serious: No
  Sender: FDA-Public Use
  Company Number: US-GLAXOSMITHKLINE-A0571649A

PATIENT
  Age: 46 Year
  Sex: Female

DRUGS (5)
  1. PAXIL [Suspect]
     Indication: DEPRESSION
     Dosage: 30MG PER DAY
     Route: 048
  2. FERROUS SULFATE TAB [Concomitant]
     Route: 048
  3. LEVOTHYROXIN [Concomitant]
     Route: 048
  4. CENTRUM [Concomitant]
  5. LISINOPRIL [Concomitant]

REACTIONS (1)
  - WEIGHT INCREASED [None]
